FAERS Safety Report 14304554 (Version 1)
Quarter: 2017Q4

REPORT INFORMATION
  Report Type: Spontaneous
  Country: JP (occurrence: JP)
  Receive Date: 20171219
  Receipt Date: 20171219
  Transmission Date: 20180321
  Serious: Yes (Life-Threatening, Hospitalization, Other)
  Sender: FDA-Public Use
  Company Number: JP-OTSUKA-JP-2011-10440

PATIENT
  Age: 52 Year
  Sex: Male
  Weight: 72.5 kg

DRUGS (15)
  1. QUETIAPINE. [Concomitant]
     Active Substance: QUETIAPINE
  2. ABILIFY [Suspect]
     Active Substance: ARIPIPRAZOLE
     Indication: DELUSION
     Dosage: 18 MG, QD
     Route: 048
     Dates: start: 20100915, end: 20100923
  3. ABILIFY [Suspect]
     Active Substance: ARIPIPRAZOLE
     Dosage: 30 MG, QD
     Route: 048
     Dates: start: 20100930, end: 20110202
  4. ABILIFY [Suspect]
     Active Substance: ARIPIPRAZOLE
     Dosage: 6 MG, QD
     Route: 048
     Dates: start: 20110310, end: 20110322
  5. MAGMITT [Concomitant]
     Active Substance: MAGNESIUM OXIDE
     Indication: CONSTIPATION
     Dosage: 1.98 G, QD
     Route: 048
     Dates: start: 20100908, end: 20110322
  6. ABILIFY [Suspect]
     Active Substance: ARIPIPRAZOLE
     Indication: HALLUCINATION
     Dosage: 6 MG, BID
     Route: 048
     Dates: start: 20100908, end: 20100914
  7. LEVOMEPROMAZINE [Concomitant]
     Active Substance: LEVOMEPROMAZINE
     Dosage: TABLET
     Dates: start: 20100924, end: 20110323
  8. ABILIFY [Suspect]
     Active Substance: ARIPIPRAZOLE
     Dosage: 24 MG, QD
     Route: 048
     Dates: start: 20100924, end: 20100928
  9. HIRNAMIN [Concomitant]
     Active Substance: PHENOTHIAZINE
     Indication: INSOMNIA
     Dosage: 50 MG, QD
     Route: 048
     Dates: start: 20100924, end: 20100929
  10. ABILIFY [Suspect]
     Active Substance: ARIPIPRAZOLE
     Dosage: 18 MG, QD
     Route: 048
     Dates: start: 20110210, end: 20110302
  11. HACHIMI-JIO-GAN [Concomitant]
     Indication: URINARY RETENTION
     Dosage: 7.5 G, QD
     Route: 048
     Dates: start: 20101008, end: 20110217
  12. MIRTAZAPINE. [Concomitant]
     Active Substance: MIRTAZAPINE
     Dosage: REFLEX TABS;17FEB2011:45MG
  13. ABILIFY [Suspect]
     Active Substance: ARIPIPRAZOLE
     Dosage: 24 MG, QD
     Route: 048
     Dates: start: 20110203, end: 20110209
  14. ABILIFY [Suspect]
     Active Substance: ARIPIPRAZOLE
     Dosage: 15 MG, QD
     Route: 048
     Dates: start: 20110303, end: 20110309
  15. HIRNAMIN [Concomitant]
     Active Substance: PHENOTHIAZINE
     Dosage: 50-100MG, DAILY DOSE
     Route: 048
     Dates: start: 20100930, end: 20110323

REACTIONS (3)
  - Depression [Recovering/Resolving]
  - Pre-existing condition improved [Recovering/Resolving]
  - Suicide attempt [Unknown]

NARRATIVE: CASE EVENT DATE: 20101203
